FAERS Safety Report 20097638 (Version 1)
Quarter: 2021Q4

REPORT INFORMATION
  Report Type: Spontaneous
  Country: CA (occurrence: None)
  Receive Date: 20211121
  Receipt Date: 20211121
  Transmission Date: 20220303
  Serious: Yes (Other)
  Sender: FDA-Public Use
  Company Number: None

PATIENT
  Age: 26 Year
  Weight: 92.25 kg

DRUGS (1)
  1. PREGABALIN [Suspect]
     Active Substance: PREGABALIN
     Indication: Lumbar radiculopathy
     Dosage: FREQUENCY : TWICE A DAY;?
     Route: 048

REACTIONS (12)
  - Withdrawal syndrome [None]
  - Feeling hot [None]
  - Chills [None]
  - Cold sweat [None]
  - Depressed level of consciousness [None]
  - Depression [None]
  - Lethargy [None]
  - Dyspnoea [None]
  - Loss of personal independence in daily activities [None]
  - Headache [None]
  - Neuralgia [None]
  - Condition aggravated [None]

NARRATIVE: CASE EVENT DATE: 20211112
